FAERS Safety Report 4943913-4 (Version None)
Quarter: 2006Q1

REPORT INFORMATION
  Report Type: 
  Country: None (occurrence: None)
  Receive Date: 20060315
  Receipt Date: 20060206
  Transmission Date: 20060701
  Serious: Yes (Hospitalization)
  Sender: FDA-Public Use
  Company Number: SE-JNJFOC-20060302620

PATIENT
  Sex: Male

DRUGS (10)
  1. REOPRO [Suspect]
     Dosage: EIGHT HOUR INFUSION
     Route: 042
  2. REOPRO [Suspect]
     Dosage: BOLUS DOSE
     Route: 042
  3. REOPRO [Suspect]
     Indication: DRUG USE FOR UNKNOWN INDICATION
     Route: 042
  4. ATACAND [Concomitant]
  5. KLEXANE [Concomitant]
  6. NITROMEX [Concomitant]
  7. BEHEPAN [Concomitant]
  8. SELOKEN [Concomitant]
  9. TROMBYL [Concomitant]
  10. PLAVIX [Concomitant]

REACTIONS (3)
  - CAROTID ARTERY THROMBOSIS [None]
  - CORONARY ARTERY DISSECTION [None]
  - THROMBOCYTOPENIA [None]
